FAERS Safety Report 18390199 (Version 1)
Quarter: 2020Q4

REPORT INFORMATION
  Report Type: Report from Study
  Country: US (occurrence: US)
  Receive Date: 20201015
  Receipt Date: 20201015
  Transmission Date: 20210114
  Serious: Yes (Other)
  Sender: FDA-Public Use
  Company Number: US-GILEAD-2020-0498716

PATIENT
  Sex: Male

DRUGS (14)
  1. GABAPENTIN. [Concomitant]
     Active Substance: GABAPENTIN
  2. ZENPEP [Concomitant]
     Active Substance: PANCRELIPASE AMYLASE\PANCRELIPASE LIPASE\PANCRELIPASE PROTEASE
  3. PREDNISONE. [Concomitant]
     Active Substance: PREDNISONE
  4. IMURAN [Concomitant]
     Active Substance: AZATHIOPRINE
  5. ARANESP [Concomitant]
     Active Substance: DARBEPOETIN ALFA
  6. RENVELA [Concomitant]
     Active Substance: SEVELAMER CARBONATE
  7. VALCYTE [Concomitant]
     Active Substance: VALGANCICLOVIR HYDROCHLORIDE
  8. VITAMIN D NOS [Concomitant]
     Active Substance: VITAMIN D NOS
  9. COREG [Concomitant]
     Active Substance: CARVEDILOL
  10. HUMALOG [Concomitant]
     Active Substance: INSULIN LISPRO
  11. TACROLIMUS. [Concomitant]
     Active Substance: TACROLIMUS
  12. URSODIOL. [Concomitant]
     Active Substance: URSODIOL
  13. AZTREONAM LYSINE [Suspect]
     Active Substance: AZTREONAM LYSINE
     Indication: CYSTIC FIBROSIS
     Dosage: 75 MG, TID, 28 DAYS ON THEN 28 DAYS OFF
     Route: 055
     Dates: end: 2018
  14. AMLODIPINE + ATORVASTATIN [Concomitant]

REACTIONS (1)
  - Lung transplant [Unknown]

NARRATIVE: CASE EVENT DATE: 2018
